FAERS Safety Report 6952934-1 (Version None)
Quarter: 2010Q3

REPORT INFORMATION
  Report Type: 
  Country: None (occurrence: None)
  Receive Date: 20100829
  Receipt Date: 20100518
  Transmission Date: 20110219
  Serious: No
  Sender: FDA-Public Use
  Company Number: US-ABBOTT-10P-163-0646589-00

PATIENT
  Sex: Male

DRUGS (6)
  1. NIASPAN [Suspect]
     Indication: BLOOD CHOLESTEROL INCREASED
     Dates: start: 20081101, end: 20090501
  2. NIASPAN [Suspect]
     Dates: start: 20090501, end: 20100501
  3. NIASPAN [Suspect]
     Dates: start: 20100501
  4. COREG [Concomitant]
     Indication: PRODUCT USED FOR UNKNOWN INDICATION
  5. LISINOPRIL [Concomitant]
     Indication: PRODUCT USED FOR UNKNOWN INDICATION
     Dosage: UNKNOWN
  6. CRESTOR [Concomitant]
     Indication: PRODUCT USED FOR UNKNOWN INDICATION

REACTIONS (2)
  - FLUSHING [None]
  - PARAESTHESIA [None]
